FAERS Safety Report 8165869-6 (Version None)
Quarter: 2012Q1

REPORT INFORMATION
  Report Type: 
  Country: None (occurrence: None)
  Receive Date: 20120227
  Receipt Date: 20111117
  Transmission Date: 20120608
  Serious: No
  Sender: FDA-Public Use
  Company Number: US-MYLANLABS-2011S1022451

PATIENT
  Age: 32 Year
  Sex: Female
  Weight: 104.33 kg

DRUGS (1)
  1. AMNESTEEM [Suspect]
     Indication: ACNE CYSTIC
     Route: 048
     Dates: start: 20110323, end: 20110916

REACTIONS (2)
  - OVARIAN CYST [None]
  - BACK PAIN [None]
